FAERS Safety Report 17084682 (Version 1)
Quarter: 2019Q4

REPORT INFORMATION
  Report Type: Spontaneous
  Country: US (occurrence: US)
  Receive Date: 20191127
  Receipt Date: 20191127
  Transmission Date: 20200122
  Serious: No
  Sender: FDA-Public Use
  Company Number: US-TEVA-2019-US-1141981

PATIENT
  Sex: Female

DRUGS (3)
  1. CLONAZEPAM ACTAVIS [Suspect]
     Active Substance: CLONAZEPAM
     Indication: ANXIETY
  2. CLONAZEPAM ACTAVIS [Suspect]
     Active Substance: CLONAZEPAM
     Indication: PANIC DISORDER
     Route: 065
     Dates: start: 201807
  3. CLONAZEPAM ACTAVIS [Suspect]
     Active Substance: CLONAZEPAM
     Indication: DEPRESSION

REACTIONS (5)
  - Anxiety [Unknown]
  - Headache [Unknown]
  - Product substitution issue [Unknown]
  - Panic disorder [Unknown]
  - Sedation [Unknown]

NARRATIVE: CASE EVENT DATE: 201807
